FAERS Safety Report 12620535 (Version 2)
Quarter: 2017Q1

REPORT INFORMATION
  Report Type: Spontaneous
  Country: FR (occurrence: FR)
  Receive Date: 20160804
  Receipt Date: 20170301
  Transmission Date: 20170428
  Serious: Yes (Hospitalization)
  Sender: FDA-Public Use
  Company Number: FR-OCTA-LIT15016FR

PATIENT
  Age: 63 Year
  Sex: Female

DRUGS (1)
  1. HUMAN NORMAL IMMUNOGLOBULIN (IV) [Suspect]
     Active Substance: HUMAN IMMUNOGLOBULIN G
     Indication: THROMBOCYTOPENIA
     Dosage: MAXIMAL FLOW OF 3 ML/KG PER HOUR
     Route: 042

REACTIONS (2)
  - Pulmonary embolism [Unknown]
  - Thrombophlebitis [Unknown]
